FAERS Safety Report 14005333 (Version 1)
Quarter: 2017Q3

REPORT INFORMATION
  Report Type: Spontaneous
  Country: GB (occurrence: GB)
  Receive Date: 20170922
  Receipt Date: 20170922
  Transmission Date: 20171128
  Serious: Yes (Life-Threatening)
  Sender: FDA-Public Use
  Company Number: GB-CELGENEUS-GBR-20170904403

PATIENT
  Age: 70 Year
  Sex: Male
  Weight: 75 kg

DRUGS (1)
  1. REVLIMID [Suspect]
     Active Substance: LENALIDOMIDE
     Indication: PLASMA CELL MYELOMA
     Dosage: 5 MILLIGRAM
     Route: 048
     Dates: start: 20120512, end: 20170904

REACTIONS (1)
  - Glioblastoma [Not Recovered/Not Resolved]

NARRATIVE: CASE EVENT DATE: 20170904
